FAERS Safety Report 5258192-0 (Version None)
Quarter: 2007Q1

REPORT INFORMATION
  Report Type: 
  Country: None (occurrence: None)
  Receive Date: 20070307
  Receipt Date: 20070228
  Transmission Date: 20070707
  Serious: Yes (Other)
  Sender: FDA-Public Use
  Company Number: GB-ABBOTT-07P-167-0360557-00

PATIENT
  Age: 36 Year
  Sex: Female

DRUGS (4)
  1. SEMISODIUM VALPROATE [Suspect]
     Indication: SCHIZOPHRENIA
     Route: 065
  2. QUETIAPINE FUMARATE [Suspect]
     Indication: SCHIZOPHRENIA
     Route: 065
  3. OLANZAPINE [Concomitant]
     Indication: PSYCHOTIC DISORDER
     Route: 065
  4. ARIPIPRAZOLE [Concomitant]
     Indication: PSYCHOTIC DISORDER

REACTIONS (2)
  - LEUKOPENIA [None]
  - NEUTROPENIA [None]
